FAERS Safety Report 10072101 (Version 1)
Quarter: 2014Q2

REPORT INFORMATION
  Report Type: Spontaneous
  Country: US (occurrence: None)
  Receive Date: 20140410
  Receipt Date: 20140410
  Transmission Date: 20141212
  Serious: No
  Sender: FDA-Public Use
  Company Number: None

PATIENT
  Age: 19 Year
  Sex: Male
  Weight: 70 kg

DRUGS (7)
  1. CLINDAMYCIN [Suspect]
     Indication: ABSCESS
     Dosage: 18 HOURS
     Route: 042
  2. LOVENOX 40 MG [Concomitant]
  3. HYDROCODONE BITARTRATE [Concomitant]
  4. LANTUS [Concomitant]
  5. APIDRA [Concomitant]
  6. MUPIROCIN OINTMENT USP 2% [Concomitant]
  7. INSULIN DRIP [Concomitant]

REACTIONS (6)
  - Stridor [None]
  - Skin discolouration [None]
  - Urticaria [None]
  - Pruritus [None]
  - Swollen tongue [None]
  - Eyelid oedema [None]
